FAERS Safety Report 7619267-1 (Version None)
Quarter: 2011Q3

REPORT INFORMATION
  Report Type: 
  Country: None (occurrence: None)
  Receive Date: 20110718
  Receipt Date: 20110713
  Transmission Date: 20111222
  Serious: Yes (Death, Hospitalization, Other)
  Sender: FDA-Public Use
  Company Number: US-ASTRAZENECA-2011SE28631

PATIENT
  Age: 76 Year
  Sex: Female

DRUGS (2)
  1. TOPROL-XL [Suspect]
     Route: 048
  2. NEXIUM [Suspect]
     Indication: GASTROINTESTINAL DISORDER
     Route: 048

REACTIONS (3)
  - HEPATIC CANCER STAGE IV [None]
  - NEOPLASM MALIGNANT [None]
  - LUNG CARCINOMA CELL TYPE UNSPECIFIED STAGE IV [None]
